FAERS Safety Report 14457995 (Version 2)
Quarter: 2018Q2

REPORT INFORMATION
  Report Type: Other
  Country: CA (occurrence: CA)
  Receive Date: 20180130
  Receipt Date: 20180422
  Transmission Date: 20180711
  Serious: Yes (Hospitalization, Other)
  Sender: FDA-Public Use
  Company Number: CA-APOTEX-2018AP005672

PATIENT
  Age: 59 Year
  Sex: Female

DRUGS (2)
  1. SALBUTAMOL [Suspect]
     Active Substance: ALBUTEROL
     Indication: PRODUCT USED FOR UNKNOWN INDICATION
     Dosage: UNK
     Route: 065
  2. OXYGEN. [Concomitant]
     Active Substance: OXYGEN
     Indication: PRODUCT USED FOR UNKNOWN INDICATION
     Dosage: UNK
     Route: 065

REACTIONS (15)
  - Asthma [Unknown]
  - Cardiac disorder [Unknown]
  - Cardiovascular deconditioning [Unknown]
  - Emphysema [Unknown]
  - Pain [Unknown]
  - Chronic obstructive pulmonary disease [Unknown]
  - Pneumonia [Unknown]
  - Productive cough [Unknown]
  - Anxiety [Unknown]
  - Angiopathy [Unknown]
  - Osteoporosis [Unknown]
  - Oxygen saturation decreased [Unknown]
  - Panic disorder [Unknown]
  - Cardiac failure [Unknown]
  - Dyspnoea exertional [Unknown]
